FAERS Safety Report 7346330-5 (Version None)
Quarter: 2011Q1

REPORT INFORMATION
  Report Type: 
  Country: None (occurrence: None)
  Receive Date: 20110228
  Receipt Date: 20110222
  Transmission Date: 20110831
  Serious: Yes (Death)
  Sender: FDA-Public Use
  Company Number: 2011SP007766

PATIENT
  Age: 68 Year
  Sex: Female

DRUGS (2)
  1. TEMODAL [Suspect]
     Indication: GLIOBLASTOMA
     Dosage: PO
     Route: 048
  2. RADIOTHERAPY [Concomitant]

REACTIONS (1)
  - SEPSIS [None]
